FAERS Safety Report 15859184 (Version 1)
Quarter: 2019Q1

REPORT INFORMATION
  Report Type: Spontaneous
  Country: JP (occurrence: JP)
  Receive Date: 20190123
  Receipt Date: 20190123
  Transmission Date: 20190417
  Serious: Yes (Other)
  Sender: FDA-Public Use
  Company Number: JP-GLAXOSMITHKLINE-JP2019JPN007179

PATIENT
  Age: 30 Year
  Sex: Female

DRUGS (4)
  1. CLARITHROMYCIN. [Concomitant]
     Active Substance: CLARITHROMYCIN
     Dosage: UNK
  2. SERETIDE [Suspect]
     Active Substance: FLUTICASONE PROPIONATE\SALMETEROL XINAFOATE
     Indication: ASTHMA
     Dosage: UNK
     Route: 055
  3. LOXONIN [Suspect]
     Active Substance: LOXOPROFEN SODIUM
     Dosage: UNK
     Route: 048
  4. AZITHROMYCIN HYDRATE [Concomitant]
     Active Substance: AZITHROMYCIN DIHYDRATE
     Dosage: UNK

REACTIONS (13)
  - Wheezing [Recovering/Resolving]
  - Dyspnoea exertional [Recovering/Resolving]
  - Streptococcus test positive [Unknown]
  - Drug effect incomplete [Unknown]
  - Bronchiolitis [Recovering/Resolving]
  - Sputum discoloured [Recovering/Resolving]
  - Asthma [Recovering/Resolving]
  - Nasal polyps [Recovered/Resolved]
  - Diffuse panbronchiolitis [Recovering/Resolving]
  - Productive cough [Recovering/Resolving]
  - Sinusitis [Recovering/Resolving]
  - Eosinophilic bronchitis [Recovering/Resolving]
  - Pyrexia [Recovering/Resolving]
